FAERS Safety Report 4498347-6 (Version None)
Quarter: 2004Q4

REPORT INFORMATION
  Report Type: 
  Country: None (occurrence: None)
  Receive Date: 20041104
  Receipt Date: 20041026
  Transmission Date: 20050328
  Serious: Yes (Hospitalization)
  Sender: FDA-Public Use
  Company Number: 2002-00063DK

PATIENT
  Age: 41 Year
  Sex: Male

DRUGS (4)
  1. PENTASA [Suspect]
     Indication: COLITIS ULCERATIVE
     Dosage: SEE IMAGE
     Route: 048
     Dates: start: 20020111, end: 20020113
  2. PENTASA [Suspect]
     Indication: COLITIS ULCERATIVE
     Dosage: SEE IMAGE
     Route: 048
     Dates: start: 20020114, end: 20020121
  3. PENTASA [Suspect]
     Indication: COLITIS ULCERATIVE
     Dosage: SEE IMAGE
     Route: 048
     Dates: start: 20020201, end: 20020202
  4. BETAMETHASONE [Concomitant]

REACTIONS (15)
  - ABDOMINAL PAIN [None]
  - ABNORMAL FAECES [None]
  - C-REACTIVE PROTEIN INCREASED [None]
  - COLITIS ULCERATIVE [None]
  - CONDITION AGGRAVATED [None]
  - DRUG HYPERSENSITIVITY [None]
  - HAEMATOCHEZIA [None]
  - HAEMATOCRIT INCREASED [None]
  - HAEMOGLOBIN INCREASED [None]
  - LEUKOPENIA [None]
  - LYMPHOCYTE STIMULATION TEST POSITIVE [None]
  - PLATELET COUNT INCREASED [None]
  - PYREXIA [None]
  - RED BLOOD CELL COUNT INCREASED [None]
  - WHITE BLOOD CELL COUNT DECREASED [None]
